FAERS Safety Report 24010649 (Version 1)
Quarter: 2024Q2

REPORT INFORMATION
  Report Type: Report from Study
  Country: CA (occurrence: CA)
  Receive Date: 20240625
  Receipt Date: 20240625
  Transmission Date: 20240716
  Serious: Yes (Other)
  Sender: FDA-Public Use
  Company Number: CA-BAUSCH-BL-2024-007121

PATIENT
  Sex: Female

DRUGS (6)
  1. CONTRAVE [Suspect]
     Active Substance: BUPROPION HYDROCHLORIDE\NALTREXONE HYDROCHLORIDE
     Indication: Weight control
     Dosage: 90/8 MG, 1 TAB DAILY
     Route: 048
     Dates: start: 202403, end: 202403
  2. CONTRAVE [Suspect]
     Active Substance: BUPROPION HYDROCHLORIDE\NALTREXONE HYDROCHLORIDE
     Dosage: 90/8 MG
     Route: 048
     Dates: start: 202403, end: 202403
  3. CONTRAVE [Suspect]
     Active Substance: BUPROPION HYDROCHLORIDE\NALTREXONE HYDROCHLORIDE
     Dosage: 90/8MG, 4 TABS/DAY
     Route: 048
     Dates: start: 202403, end: 202405
  4. CONTRAVE [Suspect]
     Active Substance: BUPROPION HYDROCHLORIDE\NALTREXONE HYDROCHLORIDE
     Dosage: 90/8MG, 3 TABS/DAY
     Route: 048
     Dates: start: 202405, end: 2024
  5. CONTRAVE [Suspect]
     Active Substance: BUPROPION HYDROCHLORIDE\NALTREXONE HYDROCHLORIDE
     Dosage: 90/8MG, 2 TABS/DAY
     Route: 048
     Dates: start: 2024, end: 20240603
  6. TAMSULOSIN HYDROCHLORIDE [Suspect]
     Active Substance: TAMSULOSIN HYDROCHLORIDE
     Indication: Product used for unknown indication
     Dosage: UNK
     Route: 065

REACTIONS (16)
  - Nephrolithiasis [Not Recovered/Not Resolved]
  - Adverse food reaction [Recovering/Resolving]
  - Taste disorder [Recovering/Resolving]
  - Weight increased [Unknown]
  - Oropharyngeal pain [Unknown]
  - Diarrhoea [Unknown]
  - Malaise [Unknown]
  - Nausea [Unknown]
  - Headache [Recovering/Resolving]
  - Dry mouth [Recovering/Resolving]
  - Hyperhidrosis [Recovering/Resolving]
  - Feeling abnormal [Recovering/Resolving]
  - Insomnia [Unknown]
  - Vomiting [Unknown]
  - Dizziness [Unknown]
  - Intentional product use issue [Unknown]

NARRATIVE: CASE EVENT DATE: 20240101
